FAERS Safety Report 4305767-9 (Version None)
Quarter: 2004Q1

REPORT INFORMATION
  Report Type: 
  Country: None (occurrence: None)
  Receive Date: 20040225
  Receipt Date: 20040213
  Transmission Date: 20041129
  Serious: Yes (Hospitalization)
  Sender: FDA-Public Use
  Company Number: HQWYE999513FEB04

PATIENT
  Age: 58 Year
  Sex: Male

DRUGS (8)
  1. CORDARONE [Suspect]
     Indication: ATRIAL FLUTTER
     Dosage: 400 MG 1X PER 1 DAY, ORAL
     Route: 048
     Dates: start: 20031212, end: 20031226
  2. ATARAX [Suspect]
     Dosage: 25 MG 1X PER 1 DAY, ORAL
     Route: 048
     Dates: start: 20031208
  3. FRAXIPARINE (HEPARIN-FRACTION, CALCIUM SALT, ) [Suspect]
     Dosage: 0.3 ML 1X PER 1 DAY, SC
     Route: 058
     Dates: start: 20031208
  4. OXAZEPAM [Suspect]
     Dosage: 10 MG 1X PER 1 DAY, ORAL
     Route: 048
     Dates: start: 20031210
  5. FOLIC ACID [Suspect]
     Dosage: 1 DF DAILY, ORAL
     Route: 048
     Dates: start: 20031210
  6. VITAMIN B1 TAB [Concomitant]
  7. VITAMIN B6 [Concomitant]
  8. DIGOXIN [Concomitant]

REACTIONS (3)
  - ERYTHEMA [None]
  - PRURIGO [None]
  - RASH PRURITIC [None]
